FAERS Safety Report 9170160 (Version 2)
Quarter: 2013Q2

REPORT INFORMATION
  Report Type: Report from Study
  Country: BD (occurrence: BD)
  Receive Date: 20130319
  Receipt Date: 20130509
  Transmission Date: 20140414
  Serious: Yes (Other)
  Sender: FDA-Public Use
  Company Number: PHHY2013BD026461

PATIENT
  Age: 63 Year
  Sex: Male

DRUGS (1)
  1. EXELON PATCH [Suspect]
     Indication: DEMENTIA
     Dosage: 9.5 MG (10 CM), DAILY
     Route: 062
     Dates: start: 201205, end: 201210

REACTIONS (2)
  - Renal impairment [Not Recovered/Not Resolved]
  - Diabetes mellitus inadequate control [Unknown]
